FAERS Safety Report 9190852 (Version 4)
Quarter: 2013Q4

REPORT INFORMATION
  Report Type: Report from Study
  Country: JP (occurrence: JP)
  Receive Date: 20130326
  Receipt Date: 20131021
  Transmission Date: 20140711
  Serious: Yes (Hospitalization)
  Sender: FDA-Public Use
  Company Number: JP-VIIV HEALTHCARE LIMITED-B0581964A

PATIENT
  Age: 41 Year
  Sex: Male
  Weight: 68 kg

DRUGS (19)
  1. LEXIVA [Suspect]
     Indication: HIV INFECTION
     Dosage: 1400MG PER DAY
     Route: 048
     Dates: start: 20080613
  2. EPIVIR [Suspect]
     Indication: HIV INFECTION
     Dosage: 150MG TWICE PER DAY
     Route: 048
     Dates: start: 19970417, end: 19970514
  3. EPIVIR [Suspect]
     Indication: HIV INFECTION
     Dosage: 150MG TWICE PER DAY
     Route: 048
     Dates: start: 19971002, end: 19991031
  4. EPIVIR [Suspect]
     Indication: HIV INFECTION
     Route: 048
     Dates: start: 19991101, end: 20030331
  5. EPIVIR [Suspect]
     Indication: HIV INFECTION
     Dosage: 150MG TWICE PER DAY
     Route: 048
     Dates: start: 20030401, end: 20031203
  6. EPIVIR [Suspect]
     Indication: HIV INFECTION
     Dosage: 300MG PER DAY
     Route: 048
     Dates: start: 20040420, end: 20080604
  7. EPIVIR [Suspect]
     Indication: HIV INFECTION
     Dosage: 300MG PER DAY
     Route: 048
     Dates: start: 20080613
  8. ZIAGEN [Suspect]
     Indication: HIV INFECTION
     Dosage: 600MG PER DAY
     Route: 048
     Dates: start: 20040420, end: 20080604
  9. ZIAGEN [Suspect]
     Indication: HIV INFECTION
     Dosage: 600MG PER DAY
     Route: 048
     Dates: start: 20080613
  10. NORVIR [Suspect]
     Indication: HIV INFECTION
     Route: 048
     Dates: start: 19991120, end: 20031202
  11. NORVIR [Suspect]
     Indication: HIV INFECTION
     Route: 048
     Dates: start: 20040615, end: 20080604
  12. NORVIR [Suspect]
     Indication: HIV INFECTION
     Route: 048
     Dates: start: 20080613, end: 20110822
  13. REYATAZ [Suspect]
     Indication: HIV INFECTION
     Route: 048
     Dates: start: 20040420, end: 20040614
  14. REYATAZ [Suspect]
     Indication: HIV INFECTION
     Route: 048
     Dates: start: 20040615, end: 20080604
  15. NORVIR [Concomitant]
     Indication: HIV INFECTION
     Route: 048
     Dates: start: 20110823
  16. RISPERDAL [Concomitant]
     Indication: SCHIZOPHRENIA
     Dosage: 1MG PER DAY
     Route: 048
     Dates: start: 20090401
  17. LOXOPROFEN [Concomitant]
     Indication: PROCEDURAL PAIN
     Route: 048
     Dates: start: 20100730, end: 20101006
  18. MAGLAX [Concomitant]
     Indication: POSTOPERATIVE CARE
     Dosage: 330MG THREE TIMES PER DAY
     Route: 048
     Dates: start: 20100730, end: 20100806
  19. ALOSITOL [Concomitant]
     Indication: BLOOD URIC ACID INCREASED
     Dosage: 100MG TWICE PER DAY
     Route: 048
     Dates: start: 20120402

REACTIONS (9)
  - Renal failure acute [Recovered/Resolved]
  - Blood triglycerides increased [Recovering/Resolving]
  - Blood creatinine increased [Recovering/Resolving]
  - Protein urine [Recovered/Resolved]
  - Monarthritis [Recovered/Resolved]
  - Blood uric acid increased [Unknown]
  - Calculus urinary [Recovered/Resolved]
  - Hordeolum [Recovered/Resolved]
  - Anal fistula [Recovered/Resolved]
